FAERS Safety Report 18896333 (Version 1)
Quarter: 2021Q1

REPORT INFORMATION
  Report Type: Report from Study
  Country: US (occurrence: US)
  Receive Date: 20210216
  Receipt Date: 20210216
  Transmission Date: 20210420
  Serious: Yes (Hospitalization)
  Sender: FDA-Public Use
  Company Number: US-ROCHE-2765656

PATIENT
  Age: 67 Year
  Sex: Female
  Weight: 92.99 kg

DRUGS (4)
  1. ATEZOLIZUMAB. [Suspect]
     Active Substance: ATEZOLIZUMAB
     Indication: ENDOMETRIAL CANCER
     Dosage: ON DAY 1 OF EACH 21?DAY CYCLE.
     Route: 042
     Dates: start: 20200916, end: 20201229
  2. BEVACIZUMAB. [Suspect]
     Active Substance: BEVACIZUMAB
     Indication: ENDOMETRIAL CANCER
     Dosage: 1394 MG, ON DAY 1 OF EACH 21?DAY CYCLE.
     Route: 042
     Dates: start: 20200916, end: 20201229
  3. ATEZOLIZUMAB. [Suspect]
     Active Substance: ATEZOLIZUMAB
     Indication: UTERINE CANCER
  4. BEVACIZUMAB. [Suspect]
     Active Substance: BEVACIZUMAB
     Indication: UTERINE CANCER

REACTIONS (2)
  - Failure to thrive [Unknown]
  - Acute kidney injury [Unknown]

NARRATIVE: CASE EVENT DATE: 20210126
